FAERS Safety Report 7363464-X (Version None)
Quarter: 2011Q1

REPORT INFORMATION
  Report Type: 
  Country: None (occurrence: None)
  Receive Date: 20110321
  Receipt Date: 20110311
  Transmission Date: 20110831
  Serious: Yes (Hospitalization, Other)
  Sender: FDA-Public Use
  Company Number: CA-JNJFOC-20110301554

PATIENT
  Age: 91 Year
  Sex: Female

DRUGS (3)
  1. DURAGESIC-50 [Suspect]
     Route: 062
     Dates: start: 20110108
  2. ACETAMINOPHEN [Concomitant]
     Route: 065
  3. DURAGESIC-50 [Suspect]
     Indication: PRODUCT USED FOR UNKNOWN INDICATION
     Route: 062
     Dates: start: 20110108

REACTIONS (26)
  - DEHYDRATION [None]
  - HALLUCINATION [None]
  - ANXIETY [None]
  - RESTLESSNESS [None]
  - HEART RATE DECREASED [None]
  - HYPOVENTILATION [None]
  - FATIGUE [None]
  - CONFUSIONAL STATE [None]
  - COLD SWEAT [None]
  - FRUSTRATION [None]
  - DRUG PRESCRIBING ERROR [None]
  - EATING DISORDER [None]
  - ASTHENIA [None]
  - CYSTITIS [None]
  - WRONG TECHNIQUE IN DRUG USAGE PROCESS [None]
  - SOMNOLENCE [None]
  - GAIT DISTURBANCE [None]
  - MOOD SWINGS [None]
  - PHYSICAL ABUSE [None]
  - CRYING [None]
  - ANGER [None]
  - HYPOTENSION [None]
  - IRRITABILITY [None]
  - INTESTINAL OBSTRUCTION [None]
  - DEPRESSED LEVEL OF CONSCIOUSNESS [None]
  - EMOTIONAL DISORDER [None]
